FAERS Safety Report 5117908-4 (Version None)
Quarter: 2006Q3

REPORT INFORMATION
  Report Type: 
  Country: None (occurrence: None)
  Receive Date: 20060929
  Receipt Date: 20060829
  Transmission Date: 20061208
  Serious: Yes (Congenital Anomaly, Other)
  Sender: FDA-Public Use
  Company Number: FR-ABBOTT-06P-056-0342732-00

PATIENT
  Age: 30 Month
  Sex: Male

DRUGS (1)
  1. DEPAKENE [Suspect]
     Indication: DRUG EXPOSURE DURING PREGNANCY

REACTIONS (8)
  - DEVELOPMENTAL DELAY [None]
  - DRUG EXPOSURE DURING PREGNANCY [None]
  - HYPOKINESIA [None]
  - HYPOTHALAMO-PITUITARY DISORDERS [None]
  - HYPOTONIA [None]
  - OBESITY [None]
  - RETRACTED NIPPLE [None]
  - SPEECH DISORDER DEVELOPMENTAL [None]
